FAERS Safety Report 16969709 (Version 1)
Quarter: 2019Q4

REPORT INFORMATION
  Report Type: Spontaneous
  Country: US (occurrence: US)
  Receive Date: 20190911
  Receipt Date: 20190911
  Transmission Date: 20200122
  Serious: Yes (Hospitalization)
  Sender: FDA-Public Use
  Company Number: None

PATIENT
  Sex: Male

DRUGS (16)
  1. GABAPENTIN. [Concomitant]
     Active Substance: GABAPENTIN
  2. OSCAL [Concomitant]
     Active Substance: CALCIUM CARBONATE
  3. PREDNISONE. [Concomitant]
     Active Substance: PREDNISONE
  4. ASPIRIN. [Concomitant]
     Active Substance: ASPIRIN
  5. XYZAL [Concomitant]
     Active Substance: LEVOCETIRIZINE DIHYDROCHLORIDE
  6. TADALAFIL. [Concomitant]
     Active Substance: TADALAFIL
  7. LASIX [Concomitant]
     Active Substance: FUROSEMIDE
  8. DIGOXIN. [Concomitant]
     Active Substance: DIGOXIN
  9. PRAM [Concomitant]
  10. SINGULAIR [Concomitant]
     Active Substance: MONTELUKAST SODIUM
  11. ESBRIET [Suspect]
     Active Substance: PIRFENIDONE
     Indication: IDIOPATHIC PULMONARY FIBROSIS
     Route: 048
     Dates: start: 20180520
  12. LETROZOLE. [Concomitant]
     Active Substance: LETROZOLE
  13. METOPROL SUC [Concomitant]
  14. PROLIA [Concomitant]
     Active Substance: DENOSUMAB
  15. VITAMIN D3 [Concomitant]
     Active Substance: CHOLECALCIFEROL
  16. POT CL [Concomitant]

REACTIONS (2)
  - Therapy cessation [None]
  - Respiratory disorder [None]
